FAERS Safety Report 5093150-0 (Version None)
Quarter: 2006Q3

REPORT INFORMATION
  Report Type: 
  Country: None (occurrence: None)
  Receive Date: 20060830
  Receipt Date: 20060818
  Transmission Date: 20061208
  Serious: Yes (Other)
  Sender: FDA-Public Use
  Company Number: TR-ROCHE-460732

PATIENT

DRUGS (1)
  1. PEG-INTERFERON ALFA NOS [Suspect]
     Route: 065

REACTIONS (1)
  - DYSTONIA [None]
